FAERS Safety Report 11593517 (Version 1)
Quarter: 2015Q4

REPORT INFORMATION
  Report Type: Spontaneous
  Country: FR (occurrence: FR)
  Receive Date: 20151005
  Receipt Date: 20151005
  Transmission Date: 20160304
  Serious: Yes (Other)
  Sender: FDA-Public Use
  Company Number: FR-GALDERMA-FR15007431

PATIENT
  Age: 28 Year
  Sex: Female

DRUGS (2)
  1. ROZEX (METRONIDAZOLE) [Suspect]
     Active Substance: METRONIDAZOLE
     Indication: ACNE
     Route: 061
  2. TOLEXINE [Concomitant]
     Active Substance: DOXYCYCLINE
     Dates: start: 20150609

REACTIONS (2)
  - Erythema [Recovered/Resolved]
  - Burning sensation [Recovered/Resolved]

NARRATIVE: CASE EVENT DATE: 20150708
